FAERS Safety Report 9368438 (Version 1)
Quarter: 2013Q2

REPORT INFORMATION
  Report Type: Spontaneous
  Country: US (occurrence: US)
  Receive Date: 20130625
  Receipt Date: 20130625
  Transmission Date: 20140414
  Serious: No
  Sender: FDA-Public Use
  Company Number: US-ASTELLAS-2013US004577

PATIENT
  Sex: Male

DRUGS (3)
  1. VESICARE [Suspect]
     Indication: PRODUCT USED FOR UNKNOWN INDICATION
     Dosage: 5 MG, UID/QD
     Route: 048
  2. LOTREL [Concomitant]
     Indication: BLOOD PRESSURE
     Dosage: 10/20 MG, UID/QD
     Route: 048
  3. METFORMIN [Concomitant]
     Indication: TYPE 2 DIABETES MELLITUS
     Dosage: 4 DF, UID/QD
     Route: 048

REACTIONS (1)
  - Drug ineffective [Unknown]
